FAERS Safety Report 15740212 (Version 1)
Quarter: 2018Q4

REPORT INFORMATION
  Report Type: Spontaneous
  Country: NL (occurrence: NL)
  Receive Date: 20181219
  Receipt Date: 20181219
  Transmission Date: 20190205
  Serious: Yes (Other)
  Sender: FDA-Public Use
  Company Number: NL-PFIZER INC-2018517671

PATIENT
  Age: 68 Year
  Sex: Female
  Weight: 80 kg

DRUGS (2)
  1. CAPECITABINE. [Concomitant]
     Active Substance: CAPECITABINE
     Dosage: 2000 MG/M2, DAY 1-14
     Route: 048
     Dates: start: 20141107
  2. OXALIPLATIN. [Suspect]
     Active Substance: OXALIPLATIN
     Indication: COLON CANCER
     Dosage: 130 MG/M2, IN GLUCOSE 5% EVERY 3 WEEKS
     Route: 042
     Dates: start: 20150205

REACTIONS (2)
  - Bronchospasm [Recovered/Resolved]
  - Polyneuropathy [Recovered/Resolved]

NARRATIVE: CASE EVENT DATE: 20150205
